FAERS Safety Report 25585478 (Version 1)
Quarter: 2025Q3

REPORT INFORMATION
  Report Type: Other
  Country: EU (occurrence: EU)
  Receive Date: 20250721
  Receipt Date: 20250721
  Transmission Date: 20251020
  Serious: Yes (Other)
  Sender: Steriscience PTE
  Company Number: EU-SUN PHARMACEUTICAL INDUSTRIES LTD-2025RR-515067

PATIENT
  Age: 71 Year
  Sex: Female

DRUGS (2)
  1. VANCOMYCIN [Suspect]
     Active Substance: VANCOMYCIN
     Indication: Inflammation
     Route: 042
  2. MEROPENEM [Suspect]
     Active Substance: MEROPENEM
     Indication: Inflammation
     Route: 042

REACTIONS (4)
  - Bowel movement irregularity [Unknown]
  - Faeces soft [Unknown]
  - Constipation [Unknown]
  - Abdominal pain [Unknown]
